FAERS Safety Report 5572907-3 (Version None)
Quarter: 2007Q4

REPORT INFORMATION
  Report Type: 
  Country: None (occurrence: None)
  Receive Date: 20071219
  Receipt Date: 20071219
  Transmission Date: 20080405
  Serious: Yes (Other)
  Sender: FDA-Public Use
  Company Number: None

PATIENT
  Age: 20 Year
  Sex: Female

DRUGS (1)
  1. SULFUR 30C    BOIRON BORNEMANN, INC. [Suspect]
     Dates: start: 20060924, end: 20070929

REACTIONS (4)
  - BLOOD ARSENIC INCREASED [None]
  - ENCEPHALITIS LETHARGICA [None]
  - NEUROLOGICAL SYMPTOM [None]
  - PHARMACEUTICAL PRODUCT COMPLAINT [None]
